FAERS Safety Report 5393267-7 (Version None)
Quarter: 2007Q3

REPORT INFORMATION
  Report Type: 
  Country: None (occurrence: None)
  Receive Date: 20070723
  Receipt Date: 20070717
  Transmission Date: 20080115
  Serious: Yes (Other)
  Sender: FDA-Public Use
  Company Number: US-BAYER-200710796BWH

PATIENT
  Age: 63 Year
  Sex: Male
  Weight: 104 kg

DRUGS (5)
  1. LEVITRA [Suspect]
     Indication: ERECTILE DYSFUNCTION
     Dosage: TOTAL DAILY DOSE: 10 MG  UNIT DOSE: 20 MG
     Route: 048
     Dates: start: 20061201, end: 20070301
  2. TOPROL-XL [Concomitant]
     Route: 048
  3. TRAZODONE HCL [Concomitant]
     Route: 048
  4. LISINOPRIL [Concomitant]
  5. IBUPROFEN [Concomitant]

REACTIONS (3)
  - MACULAR DEGENERATION [None]
  - VISION BLURRED [None]
  - VISUAL DISTURBANCE [None]
